FAERS Safety Report 4700041-0 (Version None)
Quarter: 2005Q2

REPORT INFORMATION
  Report Type: 
  Country: None (occurrence: None)
  Receive Date: 20050627
  Receipt Date: 20050624
  Transmission Date: 20051028
  Serious: Yes (Hospitalization)
  Sender: FDA-Public Use
  Company Number: 166

PATIENT
  Age: 50 Year
  Sex: Male

DRUGS (13)
  1. MELPHALAN [Suspect]
     Indication: MULTIPLE MYELOMA
     Dosage: 250MG PER DAY
     Route: 042
     Dates: start: 20050125
  2. TRILEPTAL [Concomitant]
  3. ZANTAC [Concomitant]
  4. SYNTHROID [Concomitant]
  5. LASIX [Concomitant]
  6. MAGNESIUM OXIDE [Concomitant]
  7. ACYCLOVIR [Concomitant]
  8. SEROQUEL [Concomitant]
  9. KLONOPIN [Concomitant]
  10. FLAGYL [Concomitant]
  11. VANCOMYCIN [Concomitant]
  12. FOLIC ACID [Concomitant]
  13. PROCRIT [Concomitant]

REACTIONS (10)
  - ASCITES [None]
  - DEHYDRATION [None]
  - DIARRHOEA [None]
  - FLATULENCE [None]
  - MENTAL STATUS CHANGES [None]
  - METABOLIC ACIDOSIS [None]
  - RENAL FAILURE ACUTE [None]
  - SEPSIS [None]
  - SINUS TACHYCARDIA [None]
  - THROMBOCYTOPENIA [None]
